FAERS Safety Report 21710348 (Version 6)
Quarter: 2024Q2

REPORT INFORMATION
  Report Type: Report from Study
  Country: US (occurrence: US)
  Receive Date: 20221211
  Receipt Date: 20240525
  Transmission Date: 20240715
  Serious: Yes (Hospitalization)
  Sender: FDA-Public Use
  Company Number: US-ABBVIE-4230728

PATIENT
  Sex: Female

DRUGS (9)
  1. HUMIRA [Suspect]
     Active Substance: ADALIMUMAB
     Indication: Colitis ulcerative
     Dosage: FORM STRENGTH: 40 MILLIGRAM/CITRATE FREE?LAST ADMIN DATE- SEP 2021
     Route: 058
     Dates: start: 20210908
  2. HUMIRA [Suspect]
     Active Substance: ADALIMUMAB
     Dosage: FORM STRENGTH: 40 MILLIGRAM/CITRATE FREE
     Route: 058
     Dates: start: 20221117
  3. HUMIRA [Suspect]
     Active Substance: ADALIMUMAB
     Dosage: FORM STRENGTH: 40 MILLIGRAM/CITRATE FREE
     Route: 058
     Dates: start: 2023
  4. HUMIRA [Suspect]
     Active Substance: ADALIMUMAB
     Dosage: FORM STRENGTH: 40 MILLIGRAM/CITRATE FREE?LAST ADMINISTRATION DATE 2023
     Route: 058
     Dates: start: 20230111
  5. HUMIRA [Suspect]
     Active Substance: ADALIMUMAB
     Dosage: FORM STRENGTH: 40 MILLIGRAM/CITRATE FREE
     Route: 058
     Dates: start: 20210926, end: 20221115
  6. HUMIRA [Suspect]
     Active Substance: ADALIMUMAB
     Dosage: FORM STRENGTH: 40 MILLIGRAM/CITRATE FREE
     Route: 058
  7. PFIZER-BIONTECH COVID-19 VACCINE [Concomitant]
     Active Substance: TOZINAMERAN
     Indication: COVID-19 immunisation
     Dosage: ONE IN ONCE?FIRST DOSE
     Route: 030
     Dates: start: 20210921, end: 20210921
  8. PFIZER-BIONTECH COVID-19 VACCINE [Concomitant]
     Active Substance: TOZINAMERAN
     Indication: COVID-19 immunisation
     Dosage: ONE IN ONCE?SECOND DOSE
     Route: 030
     Dates: start: 20220407, end: 20220407
  9. PFIZER-BIONTECH COVID-19 VACCINE [Concomitant]
     Active Substance: TOZINAMERAN
     Indication: COVID-19 immunisation
     Dosage: ONE IN ONCE?THIRD DOSE
     Route: 030
     Dates: start: 20220916, end: 20220916

REACTIONS (9)
  - Influenza [Not Recovered/Not Resolved]
  - Asthenia [Not Recovered/Not Resolved]
  - Blood sodium decreased [Unknown]
  - Faeces hard [Not Recovered/Not Resolved]
  - Coccidioidomycosis [Recovering/Resolving]
  - Hypervolaemia [Recovering/Resolving]
  - Blood potassium decreased [Unknown]
  - Asthma [Recovering/Resolving]
  - Blood pressure abnormal [Not Recovered/Not Resolved]

NARRATIVE: CASE EVENT DATE: 20220101
